FAERS Safety Report 13059866 (Version 2)
Quarter: 2017Q1

REPORT INFORMATION
  Report Type: Spontaneous
  Country: JP (occurrence: JP)
  Receive Date: 20161223
  Receipt Date: 20170127
  Transmission Date: 20170428
  Serious: Yes (Death, Other)
  Sender: FDA-Public Use
  Company Number: JP-ELI_LILLY_AND_COMPANY-JP201612007967

PATIENT
  Age: 72 Year
  Sex: Male

DRUGS (5)
  1. ERBITUX [Suspect]
     Active Substance: CETUXIMAB
     Indication: HYPOPHARYNGEAL CANCER
     Dosage: 400 MG/M2, UNKNOWN
     Route: 042
  2. ERBITUX [Suspect]
     Active Substance: CETUXIMAB
     Dosage: 250 MG/M2, WEEKLY (1/W)
     Route: 042
  3. CISPLATIN. [Suspect]
     Active Substance: CISPLATIN
     Indication: HYPOPHARYNGEAL CANCER
     Dosage: 80 MG/M2, UNKNOWN
     Route: 042
  4. 5-FLUOROURACIL                     /00098801/ [Suspect]
     Active Substance: FLUOROURACIL
     Indication: HYPOPHARYNGEAL CANCER
     Dosage: 4000 MG/M2, UNKNOWN
     Route: 042
  5. ERBITUX [Suspect]
     Active Substance: CETUXIMAB
     Dosage: 230 MG/M2, WEEKLY (1/W)
     Route: 042

REACTIONS (3)
  - Thrombotic microangiopathy [Unknown]
  - Dermatitis acneiform [Unknown]
  - Neoplasm progression [Fatal]
